FAERS Safety Report 20635653 (Version 1)
Quarter: 2022Q1

REPORT INFORMATION
  Report Type: Spontaneous
  Country: US (occurrence: None)
  Receive Date: 20220324
  Receipt Date: 20220324
  Transmission Date: 20220423
  Serious: Yes (Hospitalization)
  Sender: FDA-Public Use
  Company Number: None

PATIENT
  Age: 56 Year
  Sex: Male

DRUGS (1)
  1. TACROLIMUS [Suspect]
     Active Substance: TACROLIMUS
     Indication: Organ transplant
     Dosage: 1MG TWICE A DAY ORAL?
     Route: 048
     Dates: start: 20220312

REACTIONS (4)
  - Mouth ulceration [None]
  - Tongue ulceration [None]
  - Localised infection [None]
  - Pyrexia [None]

NARRATIVE: CASE EVENT DATE: 20220323
